FAERS Safety Report 15093632 (Version 4)
Quarter: 2024Q4

REPORT INFORMATION
  Report Type: Spontaneous
  Country: US (occurrence: US)
  Receive Date: 20180629
  Receipt Date: 20241217
  Transmission Date: 20250114
  Serious: Yes (Life-Threatening, Hospitalization, Other)
  Sender: BOEHRINGER INGELHEIM
  Company Number: US-BoehringerIngelheim-2018-BI-032762

PATIENT
  Age: 57 Year
  Sex: Female
  Weight: 69.9 kg

DRUGS (5)
  1. JARDIANCE [Suspect]
     Active Substance: EMPAGLIFLOZIN
     Indication: Type 2 diabetes mellitus
     Route: 048
     Dates: start: 20170127, end: 20180601
  2. JARDIANCE [Suspect]
     Active Substance: EMPAGLIFLOZIN
     Route: 048
     Dates: start: 20160411, end: 20180602
  3. OZEMPIC [Suspect]
     Active Substance: SEMAGLUTIDE
     Indication: Type 2 diabetes mellitus
     Dosage: FORMULATION: SOLUTION FOR INJECTION, STRENGTH: 1.34 MG/ML
     Route: 058
     Dates: start: 20180508, end: 201805
  4. NOVOLOG [Suspect]
     Active Substance: INSULIN ASPART
     Indication: Type 2 diabetes mellitus
     Dosage: FORMULATION: SOLUTION FOR INJECTION, STRENGHT:100U/ML ; DOSE: SLIDING SCALE
     Route: 058
     Dates: start: 20101201
  5. METFORMIN [Suspect]
     Active Substance: METFORMIN HYDROCHLORIDE
     Indication: Type 2 diabetes mellitus
     Route: 048
     Dates: start: 2001, end: 20180601

REACTIONS (8)
  - Euglycaemic diabetic ketoacidosis [Recovered/Resolved]
  - Dyspnoea exertional [Recovered/Resolved]
  - Lactic acidosis [Recovered/Resolved]
  - Acute myocardial infarction [Recovered/Resolved]
  - Dehydration [Recovered/Resolved]
  - Euglycaemic diabetic ketoacidosis [Recovered/Resolved]
  - Lactic acidosis [Recovered/Resolved]
  - Metabolic acidosis [Recovered/Resolved]

NARRATIVE: CASE EVENT DATE: 20180501
